FAERS Safety Report 9320515 (Version 2)
Quarter: 2013Q2

REPORT INFORMATION
  Report Type: Report from Study
  Country: US (occurrence: US)
  Receive Date: 20130531
  Receipt Date: 20130607
  Transmission Date: 20140414
  Serious: Yes (Hospitalization)
  Sender: FDA-Public Use
  Company Number: GXBR2013US001121

PATIENT
  Sex: Female
  Weight: 76.64 kg

DRUGS (3)
  1. ENOXAPARIN SODIUM [Suspect]
     Indication: THROMBOSIS
     Dosage: 100 MG, BID
     Route: 058
  2. CHEMOTHERAPEUTICS [Suspect]
     Indication: LUNG NEOPLASM MALIGNANT
     Dosage: UNK DF, UNK
  3. RADIATION THERAPY [Suspect]
     Indication: LUNG NEOPLASM MALIGNANT
     Dosage: UNK DF, UNK

REACTIONS (2)
  - Vomiting [Recovering/Resolving]
  - Dysphagia [Recovering/Resolving]
